FAERS Safety Report 20145734 (Version 1)
Quarter: 2021Q4

REPORT INFORMATION
  Report Type: Spontaneous
  Country: CN (occurrence: CN)
  Receive Date: 20211203
  Receipt Date: 20211203
  Transmission Date: 20220303
  Serious: Yes (Other)
  Sender: FDA-Public Use
  Company Number: CN-ELI_LILLY_AND_COMPANY-CN202111012071

PATIENT
  Age: 28 Year
  Sex: Female
  Weight: 48 kg

DRUGS (2)
  1. GEMCITABINE HYDROCHLORIDE [Suspect]
     Active Substance: GEMCITABINE HYDROCHLORIDE
     Indication: Uterine cancer
     Dosage: 1400 MG, DAILY
     Route: 041
     Dates: start: 20210313, end: 20210313
  2. DOCETAXEL [Suspect]
     Active Substance: DOCETAXEL
     Indication: Uterine cancer
     Dosage: 110 MG, DAILY
     Route: 041
     Dates: start: 20210312, end: 20210312

REACTIONS (2)
  - Myelosuppression [Recovering/Resolving]
  - White blood cell count decreased [Recovering/Resolving]

NARRATIVE: CASE EVENT DATE: 20210319
